FAERS Safety Report 13928481 (Version 1)
Quarter: 2017Q3

REPORT INFORMATION
  Report Type: Report from Study
  Country: RO (occurrence: RO)
  Receive Date: 20170901
  Receipt Date: 20170901
  Transmission Date: 20171127
  Serious: Yes (Hospitalization)
  Sender: FDA-Public Use
  Company Number: RO-ROCHE-1987048

PATIENT
  Sex: Female
  Weight: 61 kg

DRUGS (1)
  1. HERCEPTIN [Suspect]
     Active Substance: TRASTUZUMAB
     Indication: NEOPLASM MALIGNANT
     Route: 058
     Dates: start: 201605, end: 2017

REACTIONS (3)
  - Weight decreased [Unknown]
  - Intervertebral disc protrusion [Recovered/Resolved]
  - Cardiac disorder [Not Recovered/Not Resolved]
